FAERS Safety Report 5258641-8 (Version None)
Quarter: 2007Q1

REPORT INFORMATION
  Report Type: 
  Country: None (occurrence: None)
  Receive Date: 20070308
  Receipt Date: 20070228
  Transmission Date: 20070707
  Serious: Yes (Other)
  Sender: FDA-Public Use
  Company Number: GB-ROCHE-485066

PATIENT
  Age: 33 Year
  Sex: Male

DRUGS (2)
  1. INTERFERON ALFA [Suspect]
     Indication: HODGKIN'S DISEASE
     Route: 058
  2. LYMPHOCYTE TRANSFUSION [Suspect]
     Indication: HODGKIN'S DISEASE
     Dosage: THE PATIENT RECEIVED AN ESCALATING DOSE SCHEDULE OF 1X10^6, 5X10^6, 1X10^7, 1.9X10^7, 5X10^7 AND 4.+
     Route: 065

REACTIONS (2)
  - ACUTE GRAFT VERSUS HOST DISEASE IN SKIN [None]
  - KOEBNER PHENOMENON [None]
